FAERS Safety Report 14600358 (Version 1)
Quarter: 2018Q1

REPORT INFORMATION
  Report Type: Report from Study
  Country: GB (occurrence: GB)
  Receive Date: 20180305
  Receipt Date: 20180305
  Transmission Date: 20180509
  Serious: Yes (Other)
  Sender: FDA-Public Use
  Company Number: GB-MYLANLABS-2018M1013863

PATIENT
  Sex: Female

DRUGS (1)
  1. PROPRANOLOL [Suspect]
     Active Substance: PROPRANOLOL HYDROCHLORIDE
     Indication: HEART RATE
     Dosage: UNK
     Route: 042

REACTIONS (2)
  - Paradoxical drug reaction [Recovered/Resolved]
  - Electrocardiogram QT prolonged [Recovered/Resolved]
